FAERS Safety Report 4476418-8 (Version None)
Quarter: 2004Q4

REPORT INFORMATION
  Report Type: 
  Country: None (occurrence: None)
  Receive Date: 20041016
  Receipt Date: 20041007
  Transmission Date: 20050328
  Serious: Yes (Life-Threatening, Hospitalization, Other)
  Sender: FDA-Public Use
  Company Number: US-MERCK-0410USA01253

PATIENT
  Age: 62 Year
  Sex: Male
  Weight: 82 kg

DRUGS (4)
  1. LIPITOR [Concomitant]
     Route: 048
     Dates: start: 19880101
  2. ATARAX [Concomitant]
     Route: 048
     Dates: start: 19840101
  3. PREVACID [Concomitant]
     Route: 048
     Dates: start: 20021001
  4. VIOXX [Suspect]
     Indication: ARTHRITIS
     Route: 048
     Dates: start: 20030201, end: 20040213

REACTIONS (1)
  - MYOCARDIAL INFARCTION [None]
